FAERS Safety Report 7879294-6 (Version None)
Quarter: 2011Q4

REPORT INFORMATION
  Report Type: 
  Country: None (occurrence: None)
  Receive Date: 20111101
  Receipt Date: 20111021
  Transmission Date: 20120403
  Serious: Yes (Hospitalization, Other)
  Sender: FDA-Public Use
  Company Number: US-BAYER-2011-052268

PATIENT
  Age: 15 Year
  Sex: Female
  Weight: 90.703 kg

DRUGS (7)
  1. CILOXAN [Concomitant]
     Dosage: 0.3 %, TID
  2. PROVERA [Concomitant]
     Dosage: 10 MG, QD
     Route: 048
  3. ALEVE [Concomitant]
     Indication: PAIN
     Dosage: UNK UNK, TID
     Dates: start: 20090701
  4. ROCEPHIN [Concomitant]
     Dosage: UNK
     Route: 042
     Dates: start: 20090802
  5. MIDOL [ACETYLSALICYLIC ACID,CAFFEINE,CINNAMEDRINE,PHENACETIN] [Concomitant]
     Indication: MUSCLE SPASMS
     Dosage: UNK UNK, TID
     Dates: start: 20090701
  6. YAZ [Suspect]
     Dosage: UNK
     Dates: start: 20080101, end: 20090101
  7. YASMIN [Suspect]
     Dosage: UNK
     Dates: start: 20080101, end: 20090101

REACTIONS (3)
  - GALLBLADDER DISORDER [None]
  - PAIN [None]
  - CHOLELITHIASIS [None]
